FAERS Safety Report 4576309-8 (Version None)
Quarter: 2005Q1

REPORT INFORMATION
  Report Type: 
  Country: None (occurrence: None)
  Receive Date: 20050209
  Receipt Date: 20030325
  Transmission Date: 20050727
  Serious: Yes (Hospitalization)
  Sender: FDA-Public Use
  Company Number: AU-ABBOTT-03P-008-0214796-00

PATIENT
  Sex: Female
  Weight: 95 kg

DRUGS (1)
  1. REDUCTIL 10MG [Suspect]
     Indication: OBESITY
     Route: 048
     Dates: start: 20030320, end: 20030324

REACTIONS (2)
  - HEPATIC ENZYME INCREASED [None]
  - PANCREATITIS ACUTE [None]
